FAERS Safety Report 8191876-3 (Version None)
Quarter: 2012Q1

REPORT INFORMATION
  Report Type: 
  Country: None (occurrence: None)
  Receive Date: 20120307
  Receipt Date: 20120221
  Transmission Date: 20120608
  Serious: Yes (Hospitalization, Other)
  Sender: FDA-Public Use
  Company Number: PHHY2011IN68276

PATIENT
  Sex: Female

DRUGS (2)
  1. GLEEVEC [Suspect]
     Indication: CHRONIC MYELOID LEUKAEMIA
     Dosage: 600 MG,
  2. GLEEVEC [Suspect]
     Dosage: 800 MG

REACTIONS (8)
  - DIABETES MELLITUS [None]
  - WEIGHT INCREASED [None]
  - EYE DISORDER [None]
  - FURUNCLE [None]
  - OBESITY [None]
  - RETINOPATHY [None]
  - VISUAL IMPAIRMENT [None]
  - DRUG INEFFECTIVE [None]
